FAERS Safety Report 4930416-6 (Version None)
Quarter: 2006Q1

REPORT INFORMATION
  Report Type: 
  Country: None (occurrence: None)
  Receive Date: 20060302
  Receipt Date: 20060228
  Transmission Date: 20060701
  Serious: Yes (Death, Hospitalization)
  Sender: FDA-Public Use
  Company Number: NSADSS2002044468

PATIENT
  Age: 56 Year
  Sex: Male
  Weight: 80 kg

DRUGS (5)
  1. REMICADE [Suspect]
     Route: 041
  2. REMICADE [Suspect]
     Route: 041
  3. REMICADE [Suspect]
     Route: 041
  4. METHYLPREDNISOLONE [Concomitant]
     Route: 048
  5. METHOTREXATE [Concomitant]
     Route: 048

REACTIONS (7)
  - BIOPSY BONE MARROW ABNORMAL [None]
  - CHOLESTASIS [None]
  - HEPATOMEGALY [None]
  - HYPERGAMMAGLOBULINAEMIA [None]
  - MULTI-ORGAN FAILURE [None]
  - SERUM FERRITIN INCREASED [None]
  - TUBERCULOSIS GASTROINTESTINAL [None]
